FAERS Safety Report 25916426 (Version 1)
Quarter: 2025Q4

REPORT INFORMATION
  Report Type: Report from Study
  Country: IN (occurrence: None)
  Receive Date: 20251014
  Receipt Date: 20251014
  Transmission Date: 20260118
  Serious: Yes (Other)
  Sender: UCB
  Company Number: IN-UCBSA-2025063135

PATIENT

DRUGS (2)
  1. LEVETIRACETAM [Suspect]
     Active Substance: LEVETIRACETAM
     Indication: Epilepsy
     Dosage: UNK
  2. LEVETIRACETAM [Suspect]
     Active Substance: LEVETIRACETAM
     Indication: Epilepsy
     Dosage: UNK

REACTIONS (21)
  - Hallucination [Unknown]
  - Intellectual disability [Unknown]
  - Depression [Unknown]
  - Aggression [Unknown]
  - Anxiety [Unknown]
  - Fear [Unknown]
  - Tension [Unknown]
  - Somnolence [Unknown]
  - Headache [Unknown]
  - Insomnia [Unknown]
  - Red blood cell count decreased [Unknown]
  - Full blood count increased [Unknown]
  - Full blood count decreased [Unknown]
  - Neutrophil count increased [Unknown]
  - Eosinopenia [Unknown]
  - Monocytopenia [Unknown]
  - Haemoglobin decreased [Unknown]
  - Lymphopenia [Unknown]
  - Lymphocytosis [Unknown]
  - Haematocrit decreased [Unknown]
  - Mean cell haemoglobin decreased [Unknown]
